FAERS Safety Report 18339936 (Version 2)
Quarter: 2021Q4

REPORT INFORMATION
  Report Type: Spontaneous
  Country: CA (occurrence: CA)
  Receive Date: 20201002
  Receipt Date: 20211209
  Transmission Date: 20220303
  Serious: Yes (Other)
  Sender: FDA-Public Use
  Company Number: CA-SAMSUNG BIOEPIS-SB-2020-30230

PATIENT
  Age: 45 Year
  Sex: Female

DRUGS (11)
  1. INFLIXIMAB [Suspect]
     Active Substance: INFLIXIMAB
     Indication: Product used for unknown indication
     Dosage: UNKNOWN
     Route: 042
  2. DACLIZUMAB [Suspect]
     Active Substance: DACLIZUMAB
     Indication: Product used for unknown indication
     Dosage: UNKNOWN
     Route: 065
  3. ENBREL [Suspect]
     Active Substance: ETANERCEPT
     Indication: Product used for unknown indication
     Route: 048
  4. ENBREL [Suspect]
     Active Substance: ETANERCEPT
     Route: 058
  5. MYCOPHENOLATE MOFETIL [Suspect]
     Active Substance: MYCOPHENOLATE MOFETIL
     Indication: Product used for unknown indication
     Route: 048
  6. NEORAL [Suspect]
     Active Substance: CYCLOSPORINE
     Indication: Product used for unknown indication
     Dosage: UNKNOWN
     Route: 065
  7. PROGRAF [Suspect]
     Active Substance: TACROLIMUS
     Indication: Product used for unknown indication
     Route: 048
  8. PROGRAF [Suspect]
     Active Substance: TACROLIMUS
     Route: 048
  9. PROGRAF [Suspect]
     Active Substance: TACROLIMUS
     Dosage: UNKNOWN
     Route: 065
  10. RAPAMUNE [Suspect]
     Active Substance: SIROLIMUS
     Indication: Product used for unknown indication
     Dosage: UNKNOWN
     Route: 065
  11. REMICADE [Suspect]
     Active Substance: INFLIXIMAB
     Indication: Product used for unknown indication
     Dosage: UNKNOWN, POWDER FOR SOLUTION INTRAVENOUS
     Route: 042

REACTIONS (6)
  - Acne [Not Recovered/Not Resolved]
  - Alopecia [Not Recovered/Not Resolved]
  - Ovarian cyst [Not Recovered/Not Resolved]
  - Transplant dysfunction [Not Recovered/Not Resolved]
  - Transplant rejection [Not Recovered/Not Resolved]
  - Product use issue [Not Recovered/Not Resolved]
